FAERS Safety Report 23682574 (Version 5)
Quarter: 2024Q4

REPORT INFORMATION
  Report Type: Report from Study
  Country: US (occurrence: US)
  Receive Date: 20240328
  Receipt Date: 20241230
  Transmission Date: 20250115
  Serious: No
  Sender: TAKEDA
  Company Number: US-TAKEDA-2024TUS027989

PATIENT
  Age: 73 Year
  Sex: Male

DRUGS (1)
  1. MARIBAVIR [Suspect]
     Active Substance: MARIBAVIR
     Indication: Cytomegalovirus infection
     Dosage: 400 MILLIGRAM, BID
     Dates: start: 20240316

REACTIONS (9)
  - Parvovirus infection [Unknown]
  - Cytomegalovirus infection [Unknown]
  - White blood cell count increased [Recovered/Resolved]
  - Red blood cell count increased [Unknown]
  - Haemoglobin increased [Unknown]
  - Platelet count increased [Unknown]
  - Red blood cell count decreased [Not Recovered/Not Resolved]
  - Product dose omission issue [Unknown]
  - Anaemia [Unknown]

NARRATIVE: CASE EVENT DATE: 20240322
